FAERS Safety Report 7232045-0 (Version None)
Quarter: 2011Q1

REPORT INFORMATION
  Report Type: 
  Country: None (occurrence: None)
  Receive Date: 20110118
  Receipt Date: 20110110
  Transmission Date: 20110831
  Serious: Yes (Other)
  Sender: FDA-Public Use
  Company Number: US-ELI_LILLY_AND_COMPANY-US201101002245

PATIENT
  Sex: Female

DRUGS (4)
  1. BYETTA [Suspect]
     Indication: TYPE 2 DIABETES MELLITUS
     Dosage: 5 UG, 2/D
     Route: 058
  2. MONOPRIL [Concomitant]
     Indication: PROPHYLAXIS
     Dosage: UNK, DAILY (1/D)
     Route: 048
  3. PEPCID [Concomitant]
     Indication: HIATUS HERNIA
     Dosage: 300 MG, UNK
     Route: 048
  4. BYETTA [Suspect]
     Dosage: 10 U, 2/D
     Route: 058

REACTIONS (11)
  - BLOOD GLUCOSE INCREASED [None]
  - PAIN IN EXTREMITY [None]
  - PYREXIA [None]
  - DYSPEPSIA [None]
  - ARTHRALGIA [None]
  - WEIGHT DECREASED [None]
  - DECREASED APPETITE [None]
  - THROMBOSIS [None]
  - INCORRECT DOSE ADMINISTERED [None]
  - PERIPHERAL COLDNESS [None]
  - NAUSEA [None]
